FAERS Safety Report 12677273 (Version 1)
Quarter: 2016Q3

REPORT INFORMATION
  Report Type: Spontaneous
  Country: BO (occurrence: BO)
  Receive Date: 20160823
  Receipt Date: 20160823
  Transmission Date: 20161109
  Serious: Yes (Other)
  Sender: FDA-Public Use
  Company Number: BO-JNJFOC-20160817630

PATIENT
  Sex: Male
  Weight: 70 kg

DRUGS (1)
  1. HALDOL DECANOATE [Suspect]
     Active Substance: HALOPERIDOL DECANOATE
     Indication: UNEVALUABLE EVENT
     Route: 065
     Dates: start: 20160810

REACTIONS (6)
  - Drug ineffective [Unknown]
  - Aphasia [Unknown]
  - Off label use [Unknown]
  - Aggression [Unknown]
  - Restlessness [Unknown]
  - Condition aggravated [Unknown]
